FAERS Safety Report 9269115 (Version 1)
Quarter: 2013Q2

REPORT INFORMATION
  Report Type: Other
  Country: US (occurrence: US)
  Receive Date: 20130503
  Receipt Date: 20130503
  Transmission Date: 20140414
  Serious: Yes (Death)
  Sender: FDA-Public Use
  Company Number: US-SHIRE-ALL1-2013-02793

PATIENT
  Age: 61 Year
  Sex: Male

DRUGS (2)
  1. FOSRENOL [Suspect]
     Indication: RENAL FAILURE CHRONIC
     Dosage: 1000 MG, UNKNOWN (6 PER DAY)
     Route: 048
  2. FOSRENOL [Suspect]
     Dosage: 500 MG, UNKNOWN (THREE PER DAY)
     Route: 048

REACTIONS (2)
  - Cardiac procedure complication [Fatal]
  - Overdose [Unknown]
